FAERS Safety Report 9106138 (Version 1)
Quarter: 2013Q1

REPORT INFORMATION
  Report Type: Report from Study
  Country: KR (occurrence: KR)
  Receive Date: 20130220
  Receipt Date: 20130220
  Transmission Date: 20140127
  Serious: Yes (Hospitalization)
  Sender: FDA-Public Use
  Company Number: KR-009507513-1302KOR005528

PATIENT
  Age: 70 Year
  Sex: Female
  Weight: 50 kg

DRUGS (13)
  1. DEXAMETHASONE [Suspect]
     Indication: PLASMA CELL MYELOMA
     Dosage: ON DAYS 1,2,4,5,8,9,11 AND 12 EVERY 21 DAYS
     Route: 048
     Dates: start: 20121120, end: 20130126
  2. DEXAMETHASONE [Suspect]
     Dosage: UNK
     Route: 048
     Dates: start: 20130212
  3. BORTEZOMIB [Suspect]
     Indication: PLASMA CELL MYELOMA
     Dosage: 1.3 MG/M2, UNK
     Route: 058
     Dates: start: 20121120, end: 20130125
  4. BORTEZOMIB [Suspect]
     Dosage: 1.3 MG/M2, UNK
     Route: 058
     Dates: start: 20130212
  5. ATORVASTATIN CALCIUM [Concomitant]
     Indication: HYPERCHOLESTEROLAEMIA
     Dosage: UNK
     Dates: start: 2004, end: 20130129
  6. HYDROCHLOROTHIAZIDE (+) LOSARTAN POTASSIUM [Concomitant]
     Indication: HYPERTENSION
     Dosage: UNK
     Dates: start: 20120515, end: 20130129
  7. MEGESTROL ACETATE [Concomitant]
     Indication: DECREASED APPETITE
     Dosage: UNK
     Dates: start: 20130122
  8. ZOLPIDEM TARTRATE [Concomitant]
     Indication: INSOMNIA
     Dosage: UNK
     Dates: start: 20121213, end: 20130128
  9. GABAPENTIN [Concomitant]
     Indication: NEUROPATHY PERIPHERAL
     Dosage: UNK
     Dates: start: 20130122, end: 20130129
  10. MOSAPRIDE CITRATE [Concomitant]
     Indication: GASTROOESOPHAGEAL REFLUX DISEASE
     Dosage: UNK
     Dates: start: 20130125, end: 20130129
  11. BROMHEXINE HYDROCHLORIDE [Concomitant]
     Indication: PRODUCTIVE COUGH
     Dosage: UNK
     Dates: start: 20130125, end: 20130129
  12. BEECOM C [Concomitant]
     Indication: PROPHYLAXIS
     Dosage: UNK
     Dates: start: 20060904, end: 20130129
  13. CALCIUM PANTOTHENATE [Concomitant]
     Indication: PROPHYLAXIS

REACTIONS (1)
  - Dehydration [Recovered/Resolved]
